FAERS Safety Report 19510073 (Version 1)
Quarter: 2021Q3

REPORT INFORMATION
  Report Type: Spontaneous
  Country: JP (occurrence: JP)
  Receive Date: 20210709
  Receipt Date: 20210709
  Transmission Date: 20211014
  Serious: Yes (Death, Other)
  Sender: FDA-Public Use
  Company Number: JP-KYOWAKIRIN-2021AKK011689

PATIENT

DRUGS (1)
  1. POTELIGEO [Suspect]
     Active Substance: MOGAMULIZUMAB-KPKC
     Indication: ADULT T-CELL LYMPHOMA/LEUKAEMIA
     Dosage: UNK
     Route: 041

REACTIONS (10)
  - Febrile neutropenia [Unknown]
  - Bacterial infection [Unknown]
  - Viral infection [Unknown]
  - Death [Fatal]
  - Blood creatinine increased [Unknown]
  - Fungal infection [Unknown]
  - Viraemia [Unknown]
  - Aspartate aminotransferase increased [Unknown]
  - Organ failure [Unknown]
  - Blood bilirubin increased [Unknown]
